FAERS Safety Report 6357118-6 (Version None)
Quarter: 2009Q3

REPORT INFORMATION
  Report Type: 
  Country: None (occurrence: None)
  Receive Date: 20090910
  Receipt Date: 20090825
  Transmission Date: 20100115
  Serious: Yes (Other)
  Sender: FDA-Public Use
  Company Number: 2008AL008837

PATIENT
  Age: 62 Year
  Sex: Male
  Weight: 90.7194 kg

DRUGS (38)
  1. DIGOXIN [Suspect]
     Dosage: 0.25MG, PO
     Route: 048
  2. VIAGRA [Concomitant]
  3. CARAFATE [Concomitant]
  4. GLYNASE [Concomitant]
  5. VALIUM [Concomitant]
  6. TYLENOL (CAPLET) [Concomitant]
  7. PLAVIX [Concomitant]
  8. COUMADIN [Concomitant]
  9. GLYBURIDE [Concomitant]
  10. LISINOPRIL [Concomitant]
  11. TYLOX [Concomitant]
  12. XANAX [Concomitant]
  13. AMOXICILLIN [Concomitant]
  14. METOPROLOL TARTRATE [Concomitant]
  15. NORTRIPTYLINE HCL [Concomitant]
  16. GUAIFENEX [Concomitant]
  17. LIPITOR [Concomitant]
  18. FUROSEMIDE [Concomitant]
  19. SPIRONOLACTONE [Concomitant]
  20. DILTIAZEM [Concomitant]
  21. CYCLOBENZAPRINE [Concomitant]
  22. ISOMETH/APAP [Concomitant]
  23. TOPROL-XL [Concomitant]
  24. BUPROPION HCL [Concomitant]
  25. IONAMIN-30 [Concomitant]
  26. ZETIA [Concomitant]
  27. AMBIEN [Concomitant]
  28. ZOLOFT [Concomitant]
  29. METFORMIN HCL [Concomitant]
  30. EFFEXOR [Concomitant]
  31. BENZONATATE [Concomitant]
  32. LEVAQUIN [Concomitant]
  33. ALPRAZOLAM [Concomitant]
  34. CHANTIX [Concomitant]
  35. DEPAKOTE [Concomitant]
  36. ZOLPIDEM [Concomitant]
  37. AMIODARONE HCL [Concomitant]
  38. SERTRALINE HCL [Concomitant]

REACTIONS (1)
  - INJURY [None]
